FAERS Safety Report 11685950 (Version 2)
Quarter: 2015Q4

REPORT INFORMATION
  Report Type: Report from Study
  Country: US (occurrence: US)
  Receive Date: 20151030
  Receipt Date: 20151119
  Transmission Date: 20160304
  Serious: Yes (Hospitalization)
  Sender: FDA-Public Use
  Company Number: US-BIOGENIDEC-2015BI144565

PATIENT
  Age: 55 Year
  Sex: Female

DRUGS (1)
  1. TECFIDERA [Suspect]
     Active Substance: DIMETHYL FUMARATE
     Indication: MULTIPLE SCLEROSIS
     Route: 048
     Dates: start: 201309

REACTIONS (18)
  - Memory impairment [Unknown]
  - Paraesthesia [Recovered/Resolved]
  - Muscle spasms [Unknown]
  - Fatigue [Unknown]
  - Concussion [Unknown]
  - Sciatica [Unknown]
  - Accident [Unknown]
  - Flushing [Unknown]
  - Asthenia [Unknown]
  - Spinal fusion surgery [Unknown]
  - Constipation [Unknown]
  - Back pain [Unknown]
  - Dizziness postural [Unknown]
  - Nasopharyngitis [Not Recovered/Not Resolved]
  - Vision blurred [Unknown]
  - Eye pain [Unknown]
  - Fall [Recovered/Resolved]
  - Diarrhoea [Unknown]

NARRATIVE: CASE EVENT DATE: 201411
